FAERS Safety Report 6539233-7 (Version None)
Quarter: 2010Q1

REPORT INFORMATION
  Report Type: 
  Country: None (occurrence: None)
  Receive Date: 20100112
  Receipt Date: 20100104
  Transmission Date: 20100710
  Serious: Yes (Life-Threatening)
  Sender: FDA-Public Use
  Company Number: TUK2010A00002

PATIENT
  Age: 77 Year
  Sex: Female

DRUGS (6)
  1. ACTOS [Suspect]
     Indication: DRUG USE FOR UNKNOWN INDICATION
     Dosage: 30MG, ORAL
     Route: 048
     Dates: start: 20091107, end: 20091109
  2. ASPIRIN [Concomitant]
  3. FELODIPINE [Concomitant]
  4. LATANOPROST [Concomitant]
  5. RAMIPRIL [Concomitant]
  6. TWINRIX  (HEPATITIS B VACCINE, HEPATITIS A VACCINE) [Concomitant]

REACTIONS (4)
  - ANGIOEDEMA [None]
  - EYE SWELLING [None]
  - PHARYNGEAL OEDEMA [None]
  - SWOLLEN TONGUE [None]
